FAERS Safety Report 15730211 (Version 1)
Quarter: 2018Q4

REPORT INFORMATION
  Report Type: Spontaneous
  Country: US (occurrence: US)
  Receive Date: 20181217
  Receipt Date: 20181217
  Transmission Date: 20190205
  Serious: No
  Sender: FDA-Public Use
  Company Number: US-JNJFOC-20181128491

PATIENT
  Age: 70 Year
  Sex: Female

DRUGS (4)
  1. TYLENOL EXTRA STRENGTH [Suspect]
     Active Substance: ACETAMINOPHEN
     Indication: HYPERSOMNIA
     Dosage: 500 MG AT ONCE
     Route: 048
     Dates: start: 20181119
  2. OXYTOCIN. [Concomitant]
     Active Substance: OXYTOCIN
     Indication: PAIN
     Route: 065
     Dates: start: 20181119
  3. TYLENOL EXTRA STRENGTH [Suspect]
     Active Substance: ACETAMINOPHEN
     Indication: PAIN
     Dosage: 500 MG AT ONCE
     Route: 048
     Dates: start: 20181119
  4. TYLENOL EXTRA STRENGTH [Suspect]
     Active Substance: ACETAMINOPHEN
     Indication: HEADACHE
     Dosage: 500 MG AT ONCE
     Route: 048
     Dates: start: 20181119

REACTIONS (4)
  - Product use in unapproved indication [Unknown]
  - Incorrect dose administered [Unknown]
  - Gait inability [Unknown]
  - Aphasia [Unknown]

NARRATIVE: CASE EVENT DATE: 20181119
